FAERS Safety Report 13818702 (Version 1)
Quarter: 2017Q3

REPORT INFORMATION
  Report Type: Report from Study
  Country: US (occurrence: US)
  Receive Date: 20170731
  Receipt Date: 20170731
  Transmission Date: 20171127
  Serious: No
  Sender: FDA-Public Use
  Company Number: US-EXELIXIS-CABO-17007936

PATIENT
  Sex: Male

DRUGS (10)
  1. AFINITOR [Concomitant]
     Active Substance: EVEROLIMUS
  2. CABOMETYX [Suspect]
     Active Substance: CABOZANTINIB S-MALATE
     Indication: RENAL CANCER
     Dosage: 60 MG, QD
     Route: 048
     Dates: start: 20161010, end: 20170106
  3. CENTRUM [Concomitant]
     Active Substance: VITAMINS
  4. COLACE [Concomitant]
     Active Substance: DOCUSATE SODIUM
  5. MELATONIN [Concomitant]
     Active Substance: MELATONIN
  6. CARISOPRODOL. [Concomitant]
     Active Substance: CARISOPRODOL
  7. SENNA [Concomitant]
     Active Substance: SENNA LEAF\SENNOSIDES\SENNOSIDES A AND B
  8. MAG OXIDE [Concomitant]
     Active Substance: MAGNESIUM OXIDE
  9. NORCO [Concomitant]
     Active Substance: ACETAMINOPHEN\HYDROCODONE BITARTRATE
  10. MARINOL [Concomitant]
     Active Substance: DRONABINOL

REACTIONS (1)
  - Chest discomfort [Recovered/Resolved]
